FAERS Safety Report 24015614 (Version 1)
Quarter: 2024Q2

REPORT INFORMATION
  Report Type: Spontaneous
  Country: US (occurrence: US)
  Receive Date: 20240626
  Receipt Date: 20240626
  Transmission Date: 20240716
  Serious: Yes (Hospitalization, Other)
  Sender: FDA-Public Use
  Company Number: US-ALEMBIC PHARMACUETICALS LIMITED-2024SCAL000894

PATIENT

DRUGS (2)
  1. FENOFIBRIC ACID [Interacting]
     Active Substance: FENOFIBRIC ACID
     Indication: Cirrhosis alcoholic
     Dosage: UNK
     Route: 065
  2. TACROLIMUS [Concomitant]
     Active Substance: TACROLIMUS
     Indication: Product used for unknown indication
     Dosage: UNK
     Route: 065

REACTIONS (16)
  - Multiple organ dysfunction syndrome [Unknown]
  - Drug interaction [Unknown]
  - Rhabdomyolysis [Unknown]
  - Hepatic failure [Unknown]
  - Gastrointestinal haemorrhage [Unknown]
  - Intestinal ischaemia [Unknown]
  - Acute kidney injury [Unknown]
  - Transplant rejection [Unknown]
  - Myalgia [Unknown]
  - Malaise [Unknown]
  - Hypertransaminasaemia [Unknown]
  - Aspartate aminotransferase increased [Unknown]
  - Alanine aminotransferase increased [Unknown]
  - Liver disorder [Unknown]
  - Acidosis [Unknown]
  - Anaemia [Unknown]
